FAERS Safety Report 4777544-6 (Version None)
Quarter: 2005Q3

REPORT INFORMATION
  Report Type: 
  Country: None (occurrence: None)
  Receive Date: 20050923
  Receipt Date: 20050829
  Transmission Date: 20060218
  Serious: Yes (Disabling, Other)
  Sender: FDA-Public Use
  Company Number: CH-BRISTOL-MYERS SQUIBB COMPANY-13095575

PATIENT
  Age: 30 Year
  Sex: Male

DRUGS (2)
  1. ABILIFY [Suspect]
     Indication: SCHIZOPHRENIA
     Dates: start: 20050804
  2. ABILIFY [Suspect]
     Dates: start: 20050811

REACTIONS (3)
  - ACCOMMODATION DISORDER [None]
  - DIPLOPIA [None]
  - VISION BLURRED [None]
